FAERS Safety Report 8886488 (Version 1)
Quarter: 2012Q4

REPORT INFORMATION
  Report Type: 
  Country: US (occurrence: US)
  Receive Date: 20121105
  Receipt Date: 20121105
  Transmission Date: 20130627
  Serious: No
  Sender: FDA-Public Use
  Company Number: US-ASTRAZENECA-2012SE81272

PATIENT
  Age: 84 Year
  Sex: Female

DRUGS (3)
  1. SYMBICORT [Suspect]
     Indication: ASTHMA
     Route: 055
  2. SINGULAIR [Concomitant]
  3. FLONASE [Concomitant]

REACTIONS (3)
  - Dyspnoea [Unknown]
  - Dysphagia [Unknown]
  - Oral candidiasis [Unknown]
